FAERS Safety Report 7118792-X (Version None)
Quarter: 2010Q4

REPORT INFORMATION
  Report Type: 
  Country: None (occurrence: None)
  Receive Date: 20101123
  Receipt Date: 20100921
  Transmission Date: 20110411
  Serious: No
  Sender: FDA-Public Use
  Company Number: US-KINGPHARMUSA00001-K201001191

PATIENT
  Age: 91 Year
  Sex: Male
  Weight: 56.689 kg

DRUGS (3)
  1. FLECTOR [Suspect]
     Indication: BACK PAIN
     Dosage: UNK PATCH, UNK
     Route: 061
  2. IRON [Concomitant]
  3. HYDROXYUREA [Concomitant]

REACTIONS (1)
  - DRUG INEFFECTIVE [None]
